FAERS Safety Report 6818755-5 (Version None)
Quarter: 2010Q2

REPORT INFORMATION
  Report Type: 
  Country: None (occurrence: None)
  Receive Date: 20100630
  Receipt Date: 20100615
  Transmission Date: 20101027
  Serious: Yes (Death)
  Sender: FDA-Public Use
  Company Number: FKO201000243

PATIENT
  Age: 52 Year
  Sex: Female

DRUGS (12)
  1. CYCLOPHOSPHAMIDE [Suspect]
     Indication: BREAST CANCER
  2. DOCETAXEL [Suspect]
     Indication: BREAST CANCER
  3. EPIRUBICIN [Suspect]
     Indication: BREAST CANCER
  4. CHEMOTHERAPY NOS (CHEMOTHERAPEUTICS NOS) (CHEMOTHERAPEUTICS NOS) [Concomitant]
  5. CLOZARIL [Concomitant]
  6. AMITRIPTYLINE (AMITRIPTYLINE) (AMITRIPTYLINE) [Concomitant]
  7. ASACOL (MESALAZINE) (MESALAZINE) [Concomitant]
  8. CLONAZEPAM [Concomitant]
  9. ESCITALOPRAM [Concomitant]
  10. EZETIMIBE [Concomitant]
  11. MESALAZINE (MESALAZINE) (MESALAZINE) [Concomitant]
  12. METFORMIN HCL [Concomitant]

REACTIONS (8)
  - CIRCULATORY COLLAPSE [None]
  - DIABETES MELLITUS [None]
  - HYPOGLYCAEMIA [None]
  - LYMPHOCYTE COUNT DECREASED [None]
  - MALAISE [None]
  - PNEUMONIA [None]
  - SUDDEN DEATH [None]
  - WHITE BLOOD CELL COUNT DECREASED [None]
